FAERS Safety Report 18337213 (Version 12)
Quarter: 2021Q3

REPORT INFORMATION
  Report Type: Report from Study
  Country: GB (occurrence: GB)
  Receive Date: 20201002
  Receipt Date: 20210929
  Transmission Date: 20211014
  Serious: Yes (Disabling)
  Sender: FDA-Public Use
  Company Number: GB-UCBSA-2020025671

PATIENT
  Age: 34 Year
  Sex: Female
  Weight: 54.8 kg

DRUGS (3)
  1. CERTOLIZUMAB PEGOL RA AUTOCLICKS [Suspect]
     Active Substance: CERTOLIZUMAB PEGOL
     Dosage: INCOMPLETE DOSE (INJECTION SITE LEAKED)
     Route: 058
  2. CERTOLIZUMAB PEGOL RA AUTOCLICKS [Suspect]
     Active Substance: CERTOLIZUMAB PEGOL
     Indication: RHEUMATOID ARTHRITIS
     Dosage: 400 MILLIGRAM, EV 2 WEEKS(QOW)
     Route: 058
     Dates: start: 201911
  3. CERTOLIZUMAB PEGOL RA AUTOCLICKS [Suspect]
     Active Substance: CERTOLIZUMAB PEGOL
     Dosage: 200 MILLIGRAM, EV 2 WEEKS(QOW)
     Route: 058

REACTIONS (13)
  - Wrong technique in device usage process [Unknown]
  - Illness [Not Recovered/Not Resolved]
  - Device issue [Unknown]
  - Product availability issue [Unknown]
  - Therapy interrupted [Unknown]
  - Gait disturbance [Unknown]
  - Incorrect dose administered [Unknown]
  - Dizziness [Unknown]
  - Tremor [Not Recovered/Not Resolved]
  - Injection site extravasation [Unknown]
  - Pain [Unknown]
  - Product distribution issue [Unknown]
  - Product prescribing issue [Unknown]

NARRATIVE: CASE EVENT DATE: 2020
